FAERS Safety Report 5080241-3 (Version None)
Quarter: 2006Q3

REPORT INFORMATION
  Report Type: 
  Country: None (occurrence: None)
  Receive Date: 20060720
  Receipt Date: 20050816
  Transmission Date: 20061208
  Serious: Yes (Other)
  Sender: FDA-Public Use
  Company Number: 2005116654

PATIENT
  Age: 82 Year
  Sex: Female
  Weight: 63.5036 kg

DRUGS (10)
  1. CELEBREX [Suspect]
     Indication: PAIN
  2. AMITRIPTYLINE (AMITRIPTYLINE) [Concomitant]
  3. FUROSEMIDE [Concomitant]
  4. TRAZODONE HCL [Concomitant]
  5. GLIPIZIDE [Concomitant]
  6. POTASSIUM (POTASSIUM) [Concomitant]
  7. CHROMAGEN (ASCORBIC ACID, CYANOCOBALAMIN, FERROUS FUMARATE, STOMACH DE [Concomitant]
  8. PRILOSEC [Concomitant]
  9. LORAZEPAM [Concomitant]
  10. SYNTHROID [Concomitant]

REACTIONS (3)
  - CATARACT [None]
  - CONDITION AGGRAVATED [None]
  - PAIN [None]
